FAERS Safety Report 21732237 (Version 1)
Quarter: 2022Q4

REPORT INFORMATION
  Report Type: Spontaneous
  Country: US (occurrence: US)
  Receive Date: 20221215
  Receipt Date: 20221215
  Transmission Date: 20230112
  Serious: No
  Sender: FDA-Public Use
  Company Number: US-JNJFOC-20221223982

PATIENT
  Age: 5 Decade
  Sex: Female

DRUGS (3)
  1. TYLENOL [Suspect]
     Active Substance: ACETAMINOPHEN
     Indication: Pain in extremity
     Route: 065
     Dates: start: 2022
  2. UPTRAVI [Concomitant]
     Active Substance: SELEXIPAG
     Indication: Pulmonary arterial hypertension
     Dosage: HALF TWICE DAILY FOR THE LAST 2 MONTHS
     Route: 048
     Dates: start: 202011
  3. LETAIRIS [Concomitant]
     Active Substance: AMBRISENTAN
     Indication: Product used for unknown indication
     Route: 065

REACTIONS (1)
  - Product use in unapproved indication [Unknown]

NARRATIVE: CASE EVENT DATE: 20220101
